FAERS Safety Report 4992795-3 (Version None)
Quarter: 2006Q1

REPORT INFORMATION
  Report Type: 
  Country: None (occurrence: None)
  Receive Date: 20060313
  Receipt Date: 20060120
  Transmission Date: 20060701
  Serious: No
  Sender: FDA-Public Use
  Company Number: 2006-BP-00737BP

PATIENT
  Age: 61 Year
  Sex: Female

DRUGS (5)
  1. SPIRIVA [Suspect]
     Indication: CHRONIC OBSTRUCTIVE PULMONARY DISEASE
     Dosage: 18 MCG (18 MCG, 1 IN 1 D), IH
     Route: 055
     Dates: start: 20050101
  2. BUDESONIDE [Suspect]
     Indication: CHRONIC OBSTRUCTIVE PULMONARY DISEASE
     Dosage: IH
     Route: 055
     Dates: start: 20050101
  3. ALBUTEROL SULFATE AUTOHALER [Concomitant]
  4. PROTONIX [Concomitant]
  5. ESTRADIOL [Concomitant]

REACTIONS (2)
  - HAIR TEXTURE ABNORMAL [None]
  - TRICHORRHEXIS [None]
